FAERS Safety Report 7549503-1 (Version None)
Quarter: 2011Q2

REPORT INFORMATION
  Report Type: 
  Country: None (occurrence: None)
  Receive Date: 20110615
  Receipt Date: 20041126
  Transmission Date: 20111010
  Serious: Yes (Hospitalization)
  Sender: FDA-Public Use
  Company Number: PHFR2004GB04415

PATIENT
  Sex: Female

DRUGS (1)
  1. CLOZAPINE [Suspect]
     Indication: SCHIZOPHRENIA
     Dosage: UNK
     Dates: start: 20020101, end: 20041126

REACTIONS (6)
  - ABSCESS [None]
  - VOMITING [None]
  - EATING DISORDER [None]
  - KIDNEY INFECTION [None]
  - NAUSEA [None]
  - CHOLELITHIASIS [None]
